FAERS Safety Report 7824116-2 (Version None)
Quarter: 2011Q4

REPORT INFORMATION
  Report Type: 
  Country: None (occurrence: None)
  Receive Date: 20111019
  Receipt Date: 20111017
  Transmission Date: 20120403
  Serious: Yes (Death, Life-Threatening, Hospitalization)
  Sender: FDA-Public Use
  Company Number: PHFR2011GB05233

PATIENT
  Sex: Female

DRUGS (7)
  1. CLOZARIL [Suspect]
     Dosage: 62.5 MG/DAY
     Route: 048
  2. LITHIUM CITRATE [Suspect]
     Route: 065
  3. CHLORPROMAZINE [Concomitant]
  4. MORPHINE [Concomitant]
  5. CLOZARIL [Suspect]
     Dosage: 12.5 MG/DAY
     Route: 048
     Dates: start: 20110907
  6. MIDAZOLAM HCL [Concomitant]
  7. CLOZARIL [Suspect]
     Indication: SCHIZOPHRENIA
     Dosage: UNK UKN, UNK
     Route: 048
     Dates: start: 20100210, end: 20110826

REACTIONS (4)
  - INTENTIONAL SELF-INJURY [None]
  - WOUND INFECTION [None]
  - DEPRESSED MOOD [None]
  - LOSS OF CONSCIOUSNESS [None]
